FAERS Safety Report 15028186 (Version 1)
Quarter: 2018Q2

REPORT INFORMATION
  Report Type: Spontaneous
  Country: GB (occurrence: GB)
  Receive Date: 20180619
  Receipt Date: 20180619
  Transmission Date: 20180711
  Serious: Yes (Other)
  Sender: FDA-Public Use
  Company Number: GB-TEVA-2018-GB-909500

PATIENT
  Age: 54 Year
  Sex: Female
  Weight: 69.85 kg

DRUGS (3)
  1. MIRTAZAPINE. [Concomitant]
     Active Substance: MIRTAZAPINE
     Route: 065
  2. RANITIDINE. [Concomitant]
     Active Substance: RANITIDINE
     Route: 065
  3. SERTRALINE [Suspect]
     Active Substance: SERTRALINE HYDROCHLORIDE
     Indication: DEPRESSION
     Dosage: 200
     Route: 048
     Dates: start: 20131110

REACTIONS (7)
  - Abdominal discomfort [Unknown]
  - Anxiety [Recovered/Resolved with Sequelae]
  - Gastrooesophageal reflux disease [Recovered/Resolved with Sequelae]
  - Dyspnoea [Unknown]
  - Salivary hypersecretion [Recovered/Resolved with Sequelae]
  - Choking [Unknown]
  - Abdominal pain upper [Recovered/Resolved with Sequelae]

NARRATIVE: CASE EVENT DATE: 20180422
